FAERS Safety Report 6367677-5 (Version None)
Quarter: 2009Q3

REPORT INFORMATION
  Report Type: 
  Country: None (occurrence: None)
  Receive Date: 20090921
  Receipt Date: 20090911
  Transmission Date: 20100115
  Serious: Yes (Other)
  Sender: FDA-Public Use
  Company Number: US-AVENTIS-200918140US

PATIENT
  Sex: Male

DRUGS (8)
  1. LANTUS [Suspect]
     Route: 058
     Dates: start: 20030101, end: 20090701
  2. LANTUS [Suspect]
     Route: 058
     Dates: start: 20090701
  3. OPTICLIK (INSULIN INJECTION PEN) [Suspect]
     Dates: start: 20060101
  4. SIMVASTATIN [Concomitant]
  5. IRON PILL [Concomitant]
     Dosage: DOSE: 1 TAB
  6. ACTOS [Concomitant]
  7. ORAL BLOOD GLUCOSE LOWERING DRUGS [Concomitant]
     Dosage: DOSE: 1 TAB 50/1000
  8. GLIMEPIRIDE [Concomitant]
     Dosage: DOSE: 2 TAB

REACTIONS (2)
  - COLON CANCER [None]
  - HEPATIC NEOPLASM MALIGNANT [None]
